FAERS Safety Report 12521040 (Version 2)
Quarter: 2016Q4

REPORT INFORMATION
  Report Type: Report from Study
  Country: JP (occurrence: JP)
  Receive Date: 20160701
  Receipt Date: 20161027
  Transmission Date: 20170207
  Serious: Yes (Life-Threatening, Hospitalization)
  Sender: FDA-Public Use
  Company Number: JP-AMGEN-JPNCT2016085318

PATIENT
  Age: 75 Year
  Sex: Female

DRUGS (25)
  1. TAKECAB [Concomitant]
     Active Substance: VONOPRAZAN FUMURATE
     Dosage: 10 MG, UNK
     Route: 048
     Dates: start: 20160408, end: 20160629
  2. LEVOFLOXACIN. [Concomitant]
     Active Substance: LEVOFLOXACIN
     Dosage: 250 MG, UNK
     Route: 048
     Dates: start: 20160608, end: 20160612
  3. CEFCAPENE PIVOXIL HYDROCHLORIDE [Concomitant]
     Active Substance: CEFCAPENE PIVOXIL HYDROCHLORIDE
     Dosage: 200 MG, UNK
     Route: 048
     Dates: start: 20160613, end: 20160629
  4. WARFARIN [Concomitant]
     Active Substance: WARFARIN
     Dosage: 2.5 MG, UNK
     Route: 048
     Dates: start: 20130321, end: 20160629
  5. LOXOPROFEN [Concomitant]
     Active Substance: LOXOPROFEN
     Dosage: 60 MG, UNK
     Route: 048
     Dates: start: 201603
  6. POSTERISAN FORTE [Concomitant]
     Active Substance: LIDOCAINE
     Dosage: 2 G, UNK
     Route: 054
     Dates: start: 20160402, end: 20160629
  7. ISODINE [Concomitant]
     Active Substance: POVIDONE-IODINE
     Dosage: UNK
     Route: 050
     Dates: start: 20160608, end: 20160629
  8. DEXAMETHASONE. [Suspect]
     Active Substance: DEXAMETHASONE
     Indication: PLASMA CELL MYELOMA
     Dosage: 40 MG, PER CHEMO REGIM
     Route: 048
     Dates: start: 20160330, end: 20160622
  9. FERROMIA [Concomitant]
     Active Substance: FERROUS CITRATE
     Dosage: 100 MG, UNK
     Route: 048
     Dates: start: 201508, end: 20160629
  10. LOPENA [Concomitant]
     Dosage: 4 MG, UNK
     Route: 048
     Dates: start: 201404
  11. REBAMIPIDE [Concomitant]
     Active Substance: REBAMIPIDE
     Dosage: 100 MG, UNK
     Route: 048
     Dates: start: 20160328, end: 20160629
  12. LYRICA [Concomitant]
     Active Substance: PREGABALIN
     Dosage: 150 MG, UNK
     Route: 048
     Dates: start: 201407, end: 20160629
  13. ULCERLMIN [Concomitant]
     Active Substance: SUCRALFATE
     Dosage: 10 ML, UNK
     Route: 048
     Dates: start: 201603
  14. TEARBALANCE [Concomitant]
     Active Substance: HYALURONATE SODIUM
     Dosage: UNK
     Route: 047
     Dates: start: 20160404
  15. HYALEIN [Concomitant]
     Active Substance: HYALURONATE SODIUM
     Dosage: UNK
     Route: 047
     Dates: start: 2015
  16. MILTAX [Concomitant]
     Active Substance: VIDARABINE
     Dosage: 30 MG, UNK
     Route: 062
     Dates: start: 201403, end: 20160629
  17. HEPARINOID [Concomitant]
     Active Substance: CHONDROITIN SULFATE (BOVINE)
     Dosage: UNK
     Route: 062
     Dates: start: 20160323
  18. PARIET [Concomitant]
     Active Substance: RABEPRAZOLE SODIUM
     Dosage: 10 MG, UNK
     Route: 048
     Dates: start: 201406, end: 20160407
  19. PARACETAMOL [Concomitant]
     Active Substance: ACETAMINOPHEN
     Dosage: 500 MG, UNK
     Dates: start: 20160315, end: 20160714
  20. RINDERON V [Concomitant]
     Active Substance: BETAMETHASONE VALERATE
     Dosage: UNK
     Route: 061
     Dates: start: 20160315, end: 20160629
  21. VICCLOX [Concomitant]
     Active Substance: ACYCLOVIR SODIUM
     Dosage: 200 MG, UNK
     Route: 048
     Dates: start: 2014, end: 20160629
  22. EDIROL [Concomitant]
     Active Substance: ELDECALCITOL
     Dosage: 0.75 MUG, UNK
     Route: 048
     Dates: start: 201403, end: 20160629
  23. CARFILZOMIB [Suspect]
     Active Substance: CARFILZOMIB
     Indication: PLASMA CELL MYELOMA
     Dosage: 108.5 MG, PER CHEMO REGIM
     Route: 042
     Dates: start: 20160330, end: 20160622
  24. CARBOCISTEINE [Concomitant]
     Active Substance: CARBOCYSTEINE
     Dosage: 1500 MG, UNK
     Route: 048
     Dates: start: 20160613, end: 20160629
  25. HEPARIN SODIUM. [Concomitant]
     Active Substance: HEPARIN SODIUM
     Dosage: 15000 IU, UNK
     Route: 042
     Dates: start: 20160316, end: 20160324

REACTIONS (1)
  - Thrombotic microangiopathy [Recovered/Resolved]

NARRATIVE: CASE EVENT DATE: 20160629
